FAERS Safety Report 6088834-1 (Version None)
Quarter: 2009Q1

REPORT INFORMATION
  Report Type: 
  Country: None (occurrence: None)
  Receive Date: 20090219
  Receipt Date: 20090205
  Transmission Date: 20090719
  Serious: Yes (Death, Hospitalization)
  Sender: FDA-Public Use
  Company Number: 2008S1000368

PATIENT
  Age: 74 Year
  Sex: Male
  Weight: 70 kg

DRUGS (11)
  1. CUBICIN [Suspect]
     Indication: ENDOCARDITIS
     Dosage: 6 MG/KG; Q48H; IV
     Route: 042
     Dates: start: 20080222, end: 20080327
  2. CUBICIN [Suspect]
     Indication: ENTEROCOCCAL INFECTION
     Dosage: 6 MG/KG; Q48H; IV
     Route: 042
     Dates: start: 20080222, end: 20080327
  3. VANCOMYCIN [Concomitant]
  4. VITAMIN B12 /00056201/ [Concomitant]
  5. IRON [Concomitant]
  6. ARANESP [Concomitant]
  7. CALCICHEW /00108001/ [Concomitant]
  8. FOLIC ACID [Concomitant]
  9. OMEPRAZOLE [Concomitant]
  10. ALFACALCIDOL [Concomitant]
  11. ISOSORBIDE [Concomitant]

REACTIONS (7)
  - AORTIC VALVE REPLACEMENT [None]
  - BACTERAEMIA [None]
  - CEREBROVASCULAR ACCIDENT [None]
  - DISEASE PROGRESSION [None]
  - DRUG RESISTANCE [None]
  - LABORATORY TEST ABNORMAL [None]
  - SEPSIS [None]
